FAERS Safety Report 22589775 (Version 2)
Quarter: 2024Q4

REPORT INFORMATION
  Report Type: Spontaneous
  Country: ES (occurrence: ES)
  Receive Date: 20230612
  Receipt Date: 20241030
  Transmission Date: 20250114
  Serious: Yes (Other)
  Sender: ROCHE
  Company Number: ES-CELLTRION HEALTHCARE HUNGARY KFT-2023ES011254

PATIENT
  Age: 20 Year
  Sex: Female

DRUGS (5)
  1. RITUXIMAB [Suspect]
     Active Substance: RITUXIMAB
     Indication: Granulomatosis with polyangiitis
     Dosage: 4 WEEKS FROM THE LAST RITUXIMAB DOSE TO THE FIRST VACCINE
     Route: 042
  2. RITUXIMAB [Suspect]
     Active Substance: RITUXIMAB
     Dosage: 24 WEEKS FROM THE LAST RITUXIMAB DOSE TO THE THIRD VACCINE
     Route: 042
  3. SPIKEVAX [Suspect]
     Active Substance: CX-046684
     Indication: COVID-19 prophylaxis
     Dosage: DOSE 1
     Route: 065
  4. SPIKEVAX [Suspect]
     Active Substance: CX-046684
     Dosage: 2ND DOSE
     Route: 065
  5. SPIKEVAX [Suspect]
     Active Substance: CX-046684
     Dosage: THIRD DOSE
     Route: 065

REACTIONS (2)
  - COVID-19 [Unknown]
  - Humoral immune defect [Unknown]
